FAERS Safety Report 20875553 (Version 2)
Quarter: 2022Q2

REPORT INFORMATION
  Report Type: Spontaneous
  Country: US (occurrence: US)
  Receive Date: 20220526
  Receipt Date: 20220607
  Transmission Date: 20220721
  Serious: Yes (Other)
  Sender: FDA-Public Use
  Company Number: US-AstraZeneca-2022A185564

PATIENT

DRUGS (3)
  1. GOSERELIN [Suspect]
     Active Substance: GOSERELIN
     Indication: Endometriosis
     Dosage: UNK
     Route: 058
  2. ZOLADEX [Suspect]
     Active Substance: GOSERELIN ACETATE
     Indication: Endometriosis
     Dosage: UNK
     Route: 065
  3. LEUPROLIDE ACETATE [Suspect]
     Active Substance: LEUPROLIDE ACETATE
     Indication: Endometriosis
     Dosage: 3.75 MG
     Route: 030

REACTIONS (8)
  - Suicidal ideation [Unknown]
  - Disturbance in attention [Unknown]
  - Memory impairment [Unknown]
  - Apathy [Unknown]
  - Irritability [Unknown]
  - Asthenia [Unknown]
  - Hot flush [Unknown]
  - Vulvovaginal dryness [Unknown]
